FAERS Safety Report 7212233-X (Version None)
Quarter: 2010Q4

REPORT INFORMATION
  Report Type: 
  Country: None (occurrence: None)
  Receive Date: 20101227
  Receipt Date: 20101026
  Transmission Date: 20110411
  Serious: Yes (Disabling)
  Sender: FDA-Public Use
  Company Number: LEO-2010-01140

PATIENT
  Age: 44 Year
  Sex: Male

DRUGS (2)
  1. TACLONEX [Suspect]
     Indication: PSORIASIS
     Dosage: 1 DF, USED INTERMITTENTLY (1 DOSAGE FORMS, 1 IN 1 D), TOPICAL
     Route: 061
     Dates: start: 20031101, end: 20040301
  2. IBUPROFEN [Concomitant]

REACTIONS (1)
  - DERMATITIS HERPETIFORMIS [None]
